FAERS Safety Report 17745827 (Version 1)
Quarter: 2020Q2

REPORT INFORMATION
  Report Type: Spontaneous
  Country: US (occurrence: US)
  Receive Date: 20200505
  Receipt Date: 20200505
  Transmission Date: 20200714
  Serious: Yes (Hospitalization)
  Sender: FDA-Public Use
  Company Number: US-MYLANLABS-2020M1044186

PATIENT
  Age: 24 Year
  Sex: Male
  Weight: 52.6 kg

DRUGS (1)
  1. MIDAZOLAM. [Suspect]
     Active Substance: MIDAZOLAM
     Indication: AGITATION
     Route: 030

REACTIONS (1)
  - Drug ineffective [Unknown]
